FAERS Safety Report 4823969-X (Version None)
Quarter: 2005Q4

REPORT INFORMATION
  Report Type: 
  Country: None (occurrence: None)
  Receive Date: 20051107
  Receipt Date: 20051024
  Transmission Date: 20060501
  Serious: Yes (Other)
  Sender: FDA-Public Use
  Company Number: 2005146308

PATIENT
  Age: 52 Year
  Sex: Female
  Weight: 77.1115 kg

DRUGS (12)
  1. CELEBREX [Suspect]
     Indication: SPONDYLITIS
     Dosage: 200 MG (200 MG, 1 IN 1 D), ORAL
     Route: 048
  2. ADDERALL (AMFETAMINE ASPARTATE, AMFETAMINE SULFATE, DEXAMFETAMINE SACC [Concomitant]
  3. LORAZEPAM [Concomitant]
  4. PROPANTHELINE (PROPANTHELINE) [Concomitant]
  5. ALLEGRA [Concomitant]
  6. MIRTAZAPINE [Concomitant]
  7. ESTRACE [Concomitant]
  8. MULTIVITAMIN [Concomitant]
  9. VITAMIN B (VITAMIN B) [Concomitant]
  10. VITAMIN C (VITAMIN C) [Concomitant]
  11. CHROMIUM PICOLINATE (CHROMIUM PICOLINATE) [Concomitant]
  12. CALCIUM (CALCIUM) [Concomitant]

REACTIONS (6)
  - BODY HEIGHT DECREASED [None]
  - CARDIAC FAILURE CONGESTIVE [None]
  - CONGESTIVE CARDIOMYOPATHY [None]
  - PULMONARY OEDEMA [None]
  - UPPER RESPIRATORY TRACT INFECTION [None]
  - VIRAL INFECTION [None]
